FAERS Safety Report 4765027-9 (Version None)
Quarter: 2005Q3

REPORT INFORMATION
  Report Type: 
  Country: None (occurrence: None)
  Receive Date: 20050907
  Receipt Date: 20050826
  Transmission Date: 20060218
  Serious: Yes (Other)
  Sender: FDA-Public Use
  Company Number: 2005120714

PATIENT
  Age: 59 Year
  Sex: Female
  Weight: 95.2554 kg

DRUGS (2)
  1. BENADRYL [Suspect]
     Indication: HYPERSENSITIVITY
  2. ALL OTHE THERAPEUTIC PRODUCTS (ALL OTHER THERAPEUTIC PRODUCTS) [Suspect]
     Indication: URTICARIA

REACTIONS (6)
  - ARTHROPOD BITE [None]
  - ARTHROPOD STING [None]
  - CONDITION AGGRAVATED [None]
  - HYPERSENSITIVITY [None]
  - NERVOUSNESS [None]
  - REFUSAL OF TREATMENT BY PATIENT [None]
